FAERS Safety Report 6015571-1 (Version None)
Quarter: 2008Q4

REPORT INFORMATION
  Report Type: 
  Country: None (occurrence: None)
  Receive Date: 20081222
  Receipt Date: 20081210
  Transmission Date: 20090506
  Serious: Yes (Death)
  Sender: FDA-Public Use
  Company Number: TW-PFIZER INC-2008153900

PATIENT

DRUGS (3)
  1. SUTENT [Suspect]
     Indication: THYROID CANCER
     Dosage: 25 MG, 1X/DAY
     Route: 048
     Dates: start: 20080601, end: 20081101
  2. DOCETAXEL [Concomitant]
     Dosage: 14 MG/M2, WEEKLY
     Dates: start: 20080601, end: 20081101
  3. CISPLATIN [Concomitant]
     Dosage: 25 MG/M2, UNK
     Dates: start: 20080601, end: 20081101

REACTIONS (1)
  - HYPERAMMONAEMIA [None]
